FAERS Safety Report 4307529-5 (Version None)
Quarter: 2004Q1

REPORT INFORMATION
  Report Type: 
  Country: None (occurrence: None)
  Receive Date: 20040226
  Receipt Date: 20040213
  Transmission Date: 20041129
  Serious: Yes (Other)
  Sender: FDA-Public Use
  Company Number: 2004010129

PATIENT
  Age: 78 Year
  Sex: Male
  Weight: 87.5442 kg

DRUGS (5)
  1. LIPITOR [Suspect]
     Indication: BLOOD CHOLESTEROL INCREASED
     Dosage: 10 MG (DAILY), ORAL
     Route: 048
     Dates: start: 20000101
  2. METOPROLOL (METOPROLOL) [Concomitant]
  3. ACETYLSALICYLIC ACID SRT [Concomitant]
  4. FERROUS SULFATE TAB [Concomitant]
  5. DAILY VITAMINS (VITAMINS NOS) [Concomitant]

REACTIONS (4)
  - CREATINE PHOSPHOKINASE DECREASED [None]
  - MUSCULAR WEAKNESS [None]
  - MYOPATHY [None]
  - WHITE BLOOD CELL COUNT DECREASED [None]
